FAERS Safety Report 5767563-5 (Version None)
Quarter: 2008Q2

REPORT INFORMATION
  Report Type: 
  Country: None (occurrence: None)
  Receive Date: 20080612
  Receipt Date: 20080605
  Transmission Date: 20081010
  Serious: Yes (Hospitalization)
  Sender: FDA-Public Use
  Company Number: GB-ROCHE-568576

PATIENT
  Sex: Female
  Weight: 90.7 kg

DRUGS (3)
  1. ORLISTAT [Suspect]
     Indication: OBESITY
     Route: 048
     Dates: start: 20080507, end: 20080602
  2. DOXAZOSIN MESYLATE [Concomitant]
     Indication: BLOOD PRESSURE
     Dosage: ENTERED AS 4MG TAKES 2 TABLETS AT NIGHT.
     Route: 048
  3. DILTIAZEM [Concomitant]
     Indication: BLOOD PRESSURE
     Route: 048

REACTIONS (1)
  - MUSCLE SPASMS [None]
